FAERS Safety Report 24815525 (Version 2)
Quarter: 2025Q2

REPORT INFORMATION
  Report Type: Spontaneous
  Country: US (occurrence: US)
  Receive Date: 20250107
  Receipt Date: 20250402
  Transmission Date: 20250717
  Serious: Yes (Life-Threatening, Hospitalization, Other)
  Sender: BRISTOL MYERS SQUIBB
  Company Number: US-BRISTOL-MYERS SQUIBB COMPANY-2024-201207

PATIENT
  Age: 20 Month
  Sex: Female

DRUGS (2)
  1. ORENCIA [Suspect]
     Active Substance: ABATACEPT
     Indication: Juvenile idiopathic arthritis
     Route: 042
  2. ORENCIA [Suspect]
     Active Substance: ABATACEPT
     Indication: Interstitial lung disease

REACTIONS (6)
  - Haemophagocytic lymphohistiocytosis [Unknown]
  - Interstitial lung disease [Unknown]
  - Condition aggravated [Unknown]
  - Drug ineffective [Unknown]
  - Alveolar proteinosis [Unknown]
  - Off label use [Unknown]
